FAERS Safety Report 9293632 (Version 1)
Quarter: 2013Q2

REPORT INFORMATION
  Report Type: Spontaneous
  Country: US (occurrence: US)
  Receive Date: 20130516
  Receipt Date: 20130516
  Transmission Date: 20140414
  Serious: Yes (Other)
  Sender: FDA-Public Use
  Company Number: US-BANPHARM-20120349

PATIENT
  Sex: Female

DRUGS (1)
  1. IBUPROFEN CAPSULES 200 MG [Suspect]
     Indication: PAIN IN EXTREMITY
     Dosage: 2 CAPSULES, ONCE,
     Route: 048
     Dates: start: 20121105, end: 20121105

REACTIONS (3)
  - Hypersensitivity [Recovering/Resolving]
  - Urticaria [Recovering/Resolving]
  - Swelling face [Recovering/Resolving]
